FAERS Safety Report 12134710 (Version 1)
Quarter: 2016Q1

REPORT INFORMATION
  Report Type: Spontaneous
  Country: US (occurrence: US)
  Receive Date: 20160301
  Receipt Date: 20160301
  Transmission Date: 20160526
  Serious: No
  Sender: FDA-Public Use
  Company Number: US-009507513-1602USA013026

PATIENT
  Sex: Female

DRUGS (1)
  1. NEXPLANON [Suspect]
     Active Substance: ETONOGESTREL
     Dosage: UNK
     Route: 059
     Dates: end: 20160226

REACTIONS (4)
  - Implant site bruising [Unknown]
  - Medical device site discomfort [Unknown]
  - Complication associated with device [Recovered/Resolved]
  - Application site pain [Unknown]
